FAERS Safety Report 9499135 (Version 1)
Quarter: 2013Q3

REPORT INFORMATION
  Report Type: Report from Study
  Country: GB (occurrence: GB)
  Receive Date: 20130904
  Receipt Date: 20130904
  Transmission Date: 20140515
  Serious: Yes (Hospitalization)
  Sender: FDA-Public Use
  Company Number: GB-AMGEN-GBRCT2013061918

PATIENT
  Age: 11 Year
  Sex: Female
  Weight: 21.8 kg

DRUGS (5)
  1. ETANERCEPT [Suspect]
     Indication: PRODUCT USED FOR UNKNOWN INDICATION
     Dosage: 6 MG, 2 TIMES/WK
     Route: 065
     Dates: start: 20031017
  2. IBUPROFEN [Concomitant]
     Dosage: UNK
  3. MYCOPHENOLATE MOFETIL [Concomitant]
     Dosage: UNK
  4. LANSOPRAZOLE [Concomitant]
     Dosage: UNK
  5. AMLODIPINE [Concomitant]
     Dosage: UNK

REACTIONS (1)
  - Skin infection [Unknown]
